FAERS Safety Report 9835108 (Version 1)
Quarter: 2014Q1

REPORT INFORMATION
  Report Type: Spontaneous
  Country: US (occurrence: US)
  Receive Date: 20140122
  Receipt Date: 20140122
  Transmission Date: 20141002
  Serious: No
  Sender: FDA-Public Use
  Company Number: US-BRISTOL-MYERS SQUIBB COMPANY-19793967

PATIENT
  Age: 76 Year
  Sex: Male
  Weight: 90.7 kg

DRUGS (5)
  1. ELIQUIS [Suspect]
     Indication: ATRIAL FIBRILLATION
  2. ASPIRIN [Concomitant]
  3. LOVASTATIN [Concomitant]
  4. OMEPRAZOLE [Concomitant]
  5. METOPROLOL [Concomitant]

REACTIONS (3)
  - Epistaxis [Unknown]
  - Myalgia [Unknown]
  - Drug administration error [Unknown]
